FAERS Safety Report 6239730-8 (Version None)
Quarter: 2009Q2

REPORT INFORMATION
  Report Type: 
  Country: None (occurrence: None)
  Receive Date: 20090619
  Receipt Date: 20090605
  Transmission Date: 20091009
  Serious: Yes (Death, Other)
  Sender: FDA-Public Use
  Company Number: 2009AL003830

PATIENT
  Age: 66 Year
  Sex: Male

DRUGS (11)
  1. RANITIDINE [Suspect]
     Indication: PROPHYLAXIS
  2. SULFATRIM PEDIATRIC [Suspect]
     Indication: PROPHYLAXIS
  3. ACYCLOVIR [Suspect]
     Indication: 11-BETA-HYDROXYLASE DEFICIENCY
  4. FLUCONAZOLE [Concomitant]
  5. VALACYCLOVIR HCL [Concomitant]
  6. PREDNISONE TAB [Concomitant]
  7. CYCLOPHOSPHAMIDE [Concomitant]
  8. ETOPOSIDE [Concomitant]
  9. VINCRISTINE [Concomitant]
  10. BLEOMYCIN SULFATE [Concomitant]
  11. DOXORUBICIN HCL [Concomitant]

REACTIONS (1)
  - SMALL CELL LUNG CANCER STAGE UNSPECIFIED [None]
